FAERS Safety Report 16893755 (Version 1)
Quarter: 2019Q4

REPORT INFORMATION
  Report Type: Spontaneous
  Country: CA (occurrence: CA)
  Receive Date: 20191008
  Receipt Date: 20191008
  Transmission Date: 20200122
  Serious: Yes (Death)
  Sender: FDA-Public Use
  Company Number: CA-TEVA-2019-CA-1117363

PATIENT
  Age: 48 Year
  Sex: Male

DRUGS (8)
  1. ACETAMINOPHEN AND CODEINE [Suspect]
     Active Substance: ACETAMINOPHEN\CODEINE PHOSPHATE
     Indication: ANKLE FRACTURE
     Route: 048
  2. CODEINE [Interacting]
     Active Substance: CODEINE
     Indication: ANKLE FRACTURE
     Route: 048
  3. ATIVAN [Interacting]
     Active Substance: LORAZEPAM
     Indication: PRODUCT USED FOR UNKNOWN INDICATION
     Route: 048
  4. LONARID [AMOBARBITAL;CAFFEINE ;CODEINE PHOSPHATE;OCTIBENZONIUM BROMIDE [Concomitant]
     Indication: PRODUCT USED FOR UNKNOWN INDICATION
     Route: 048
  5. MORPHINE [Concomitant]
     Active Substance: MORPHINE
     Route: 065
  6. BISACODYL. [Concomitant]
     Active Substance: BISACODYL
     Route: 065
  7. CLONAZEPAM. [Concomitant]
     Active Substance: CLONAZEPAM
     Route: 048
  8. SERTRALINE HYDROCHLORIDE. [Interacting]
     Active Substance: SERTRALINE HYDROCHLORIDE
     Indication: PRODUCT USED FOR UNKNOWN INDICATION
     Route: 048

REACTIONS (8)
  - Drug interaction [Fatal]
  - Drug level increased [Fatal]
  - Serotonin syndrome [Fatal]
  - Respiratory depression [Fatal]
  - Toxicity to various agents [Fatal]
  - Pulmonary oedema [Fatal]
  - Accidental overdose [Fatal]
  - Hypoventilation [Fatal]
